FAERS Safety Report 4482173-8 (Version None)
Quarter: 2004Q4

REPORT INFORMATION
  Report Type: 
  Country: None (occurrence: None)
  Receive Date: 20041020
  Receipt Date: 20041020
  Transmission Date: 20050328
  Serious: Yes (Death)
  Sender: FDA-Public Use
  Company Number: None

PATIENT
  Sex: Female
  Weight: 28.6 kg

DRUGS (1)
  1. DOCETAXEL  1 MG/M2/MIN X 60 MIN [Suspect]
     Indication: LEUKAEMIA
     Dosage: 60MG  DAY OR 3 DATES INTRAVENOUS
     Route: 042
     Dates: start: 20040922, end: 20041006

REACTIONS (4)
  - DRUG TOXICITY [None]
  - HYPOTENSION [None]
  - PNEUMONIA FUNGAL [None]
  - SHOCK [None]
